FAERS Safety Report 5562424-9 (Version None)
Quarter: 2007Q4

REPORT INFORMATION
  Report Type: 
  Country: None (occurrence: None)
  Receive Date: 20071215
  Receipt Date: 20070117
  Transmission Date: 20080405
  Serious: No
  Sender: FDA-Public Use
  Company Number: US-AMGEN-US196326

PATIENT
  Sex: Male

DRUGS (6)
  1. ENBREL [Suspect]
     Indication: PSORIASIS
     Route: 058
     Dates: start: 20041105, end: 20061027
  2. DOVONEX [Concomitant]
     Route: 061
     Dates: start: 20041105
  3. ELOCON [Concomitant]
     Route: 061
     Dates: start: 20041105
  4. CLOBETASOL PROPIONATE [Concomitant]
     Route: 065
     Dates: start: 20060601
  5. TAZORAC [Concomitant]
     Route: 061
     Dates: start: 20050513
  6. ELIDEL [Concomitant]
     Route: 061
     Dates: start: 20050816

REACTIONS (1)
  - LIVER FUNCTION TEST ABNORMAL [None]
